FAERS Safety Report 4425483-2 (Version None)
Quarter: 2004Q3

REPORT INFORMATION
  Report Type: 
  Country: None (occurrence: None)
  Receive Date: 20040810
  Receipt Date: 20040728
  Transmission Date: 20050211
  Serious: Yes (Other)
  Sender: FDA-Public Use
  Company Number: 2004051433

PATIENT
  Age: 63 Year
  Sex: Male
  Weight: 83.4619 kg

DRUGS (10)
  1. LIPITOR [Suspect]
     Indication: BLOOD CHOLESTEROL INCREASED
     Dosage: 20 MG (20 MG, 1 IN 1 D), ORAL
     Route: 048
  2. LIPITOR [Suspect]
     Indication: CORONARY ARTERY ATHEROSCLEROSIS
     Dosage: 20 MG (20 MG, 1 IN 1 D), ORAL
     Route: 048
  3. ASPIRIN [Concomitant]
  4. CLOPIDOGREL BISULFATE [Concomitant]
  5. ATENOLOL [Concomitant]
  6. PANTOPRAZOLE (PANTOPRAZOLE) [Concomitant]
  7. LANSOPRAZOLE [Concomitant]
  8. LEVOTHYROXINE SODIUM [Concomitant]
  9. SALBUTAMOL (SALBUTAMOL) [Concomitant]
  10. ALL OTHER THERAPEUTIC PRODUCTS (ALL OTHER THERAPEUTIC PRODUCTS) [Concomitant]

REACTIONS (4)
  - DYSPHAGIA [None]
  - RHINOVIRUS INFECTION [None]
  - THYROID GLAND CANCER [None]
  - VIRAL INFECTION [None]
